FAERS Safety Report 10713706 (Version 3)
Quarter: 2015Q1

REPORT INFORMATION
  Report Type: Report from Study
  Country: US (occurrence: US)
  Receive Date: 20150115
  Receipt Date: 20150316
  Transmission Date: 20150721
  Serious: Yes (Other)
  Sender: FDA-Public Use
  Company Number: US-BAXTER-2015BAX001716

PATIENT
  Sex: Female

DRUGS (1)
  1. GAMMAGARD LIQUID [Suspect]
     Active Substance: HUMAN IMMUNOGLOBULIN G
     Indication: PRIMARY IMMUNODEFICIENCY SYNDROME
     Route: 065

REACTIONS (14)
  - Drug dose omission [Unknown]
  - Haemoptysis [Recovered/Resolved]
  - Ear haemorrhage [Not Recovered/Not Resolved]
  - Endocarditis [Not Recovered/Not Resolved]
  - Laceration [Unknown]
  - Arteriovenous malformation [Not Recovered/Not Resolved]
  - Epistaxis [Not Recovered/Not Resolved]
  - Colonic abscess [Recovered/Resolved]
  - Chronic granulomatous disease [Not Recovered/Not Resolved]
  - Furuncle [Not Recovered/Not Resolved]
  - Localised infection [Recovered/Resolved]
  - Bone infarction [Not Recovered/Not Resolved]
  - Cellulitis [Recovered/Resolved]
  - Fungal skin infection [Not Recovered/Not Resolved]
